FAERS Safety Report 9982524 (Version 1)
Quarter: 2014Q1

REPORT INFORMATION
  Report Type: Report from Study
  Country: US (occurrence: US)
  Receive Date: 20140307
  Receipt Date: 20140307
  Transmission Date: 20141002
  Serious: No
  Sender: FDA-Public Use
  Company Number: US-ABBVIE-13P-163-1179684-00

PATIENT
  Age: 42 Year
  Sex: Female

DRUGS (4)
  1. HUMIRA [Suspect]
     Indication: COLITIS ULCERATIVE
     Dates: start: 200806
  2. PROGRAFT [Concomitant]
     Indication: PROPHYLAXIS AGAINST TRANSPLANT REJECTION
  3. JANUMET ER [Concomitant]
     Indication: DIABETES MELLITUS
     Dosage: 50/100
  4. CELEBREX [Concomitant]
     Indication: ARTHRITIS

REACTIONS (1)
  - Injection site reaction [Recovered/Resolved]
